FAERS Safety Report 12831594 (Version 1)
Quarter: 2016Q4

REPORT INFORMATION
  Report Type: Spontaneous
  Country: US (occurrence: US)
  Receive Date: 20161009
  Receipt Date: 20161009
  Transmission Date: 20170207
  Serious: Yes (Other)
  Sender: FDA-Public Use
  Company Number: US-ABBVIE-16P-163-1748843-00

PATIENT
  Sex: Female

DRUGS (1)
  1. LUPRON [Suspect]
     Active Substance: LEUPROLIDE ACETATE
     Indication: ENDOMETRIOSIS
     Route: 030
     Dates: start: 201305

REACTIONS (4)
  - Pain [Not Recovered/Not Resolved]
  - Hernia [Unknown]
  - Postoperative adhesion [Unknown]
  - Arthralgia [Unknown]

NARRATIVE: CASE EVENT DATE: 201406
